FAERS Safety Report 23349446 (Version 1)
Quarter: 2023Q4

REPORT INFORMATION
  Report Type: Spontaneous
  Country: IT (occurrence: IT)
  Receive Date: 20231229
  Receipt Date: 20231229
  Transmission Date: 20240109
  Serious: Yes (Other)
  Sender: FDA-Public Use
  Company Number: None

PATIENT
  Age: 39 Year
  Sex: Male
  Weight: 97 kg

DRUGS (3)
  1. IFOSFAMIDE [Suspect]
     Active Substance: IFOSFAMIDE
     Indication: Sarcoma metastatic
     Dosage: 9 G/M2, DOSAGE FORM: SOLUTION FOR INJECTION
     Route: 042
     Dates: start: 20231117, end: 20231118
  2. MESNA [Suspect]
     Active Substance: MESNA
     Dosage: 800 MG, DOSAGE FORM: SOLUTION FOR INJECTION
     Route: 042
     Dates: start: 20231117, end: 20231118
  3. ETOPOSIDE [Concomitant]
     Active Substance: ETOPOSIDE
     Dosage: 300 MG, DOSAGE FORM: SOLUTION FOR INJECTION
     Route: 042
     Dates: start: 20231117, end: 20231118

REACTIONS (4)
  - Neurotoxicity [Recovered/Resolved]
  - Ocular dysmetria [Recovered/Resolved]
  - Diplopia [Recovered/Resolved]
  - Vertigo [Recovered/Resolved]

NARRATIVE: CASE EVENT DATE: 20231117
